FAERS Safety Report 18342526 (Version 1)
Quarter: 2020Q4

REPORT INFORMATION
  Report Type: Spontaneous
  Country: US (occurrence: US)
  Receive Date: 20201005
  Receipt Date: 20201005
  Transmission Date: 20210113
  Serious: No
  Sender: FDA-Public Use
  Company Number: US-BIOGEN-2020BI00930895

PATIENT
  Sex: Female

DRUGS (11)
  1. TECFIDERA [Suspect]
     Active Substance: DIMETHYL FUMARATE
     Indication: MULTIPLE SCLEROSIS
     Route: 065
     Dates: start: 20131125, end: 20131209
  2. TECFIDERA [Suspect]
     Active Substance: DIMETHYL FUMARATE
     Route: 048
     Dates: start: 20131209
  3. BUPRENORPHINE. [Concomitant]
     Active Substance: BUPRENORPHINE
     Route: 065
  4. LIDOCAINE. [Concomitant]
     Active Substance: LIDOCAINE
     Route: 065
  5. PREGABALIN. [Concomitant]
     Active Substance: PREGABALIN
     Route: 065
  6. TIZANDINE [Concomitant]
     Active Substance: TIZANIDINE
     Route: 065
  7. MIRAPEX [Concomitant]
     Active Substance: PRAMIPEXOLE DIHYDROCHLORIDE
     Route: 065
  8. GABAPENTIN. [Concomitant]
     Active Substance: GABAPENTIN
     Route: 065
  9. ALENDRONATE [Concomitant]
     Active Substance: ALENDRONATE SODIUM
     Route: 065
  10. OXYCODONE AND ACETAMINOPHEN [Concomitant]
     Active Substance: ACETAMINOPHEN\OXYCODONE HYDROCHLORIDE
     Route: 065
  11. METHOCARBAMOL. [Concomitant]
     Active Substance: METHOCARBAMOL
     Route: 065

REACTIONS (7)
  - Pain [Unknown]
  - Product dose omission issue [Unknown]
  - Dental caries [Unknown]
  - Sensory disturbance [Unknown]
  - Headache [Unknown]
  - Toothache [Unknown]
  - Back pain [Unknown]
